FAERS Safety Report 22141197 (Version 2)
Quarter: 2023Q4

REPORT INFORMATION
  Report Type: Spontaneous
  Country: US (occurrence: US)
  Receive Date: 20230327
  Receipt Date: 20231018
  Transmission Date: 20240110
  Serious: No
  Sender: FDA-Public Use
  Company Number: US-SA-SAC20230323000894

PATIENT
  Age: 62 Year
  Sex: Male

DRUGS (1)
  1. MYOZYME [Suspect]
     Active Substance: ALGLUCOSIDASE ALFA
     Dosage: UNK
     Route: 042

REACTIONS (2)
  - Globotriaosylceramide increased [Unknown]
  - Neutralising antibodies positive [Unknown]

NARRATIVE: CASE EVENT DATE: 20230224
